FAERS Safety Report 21675528 (Version 8)
Quarter: 2023Q1

REPORT INFORMATION
  Report Type: Spontaneous
  Country: AR (occurrence: AR)
  Receive Date: 20221202
  Receipt Date: 20230306
  Transmission Date: 20230418
  Serious: Yes (Other)
  Sender: FDA-Public Use
  Company Number: AR-MYLANLABS-2022M1116281

PATIENT
  Age: 17 Year
  Sex: Female

DRUGS (5)
  1. CLOZAPINE [Suspect]
     Active Substance: CLOZAPINE
     Indication: Schizoaffective disorder
     Dosage: 250 MILLIGRAM, QD (IN 3 INTAKES OF 100MG 50 MG-100 MG)
     Route: 065
     Dates: start: 20221001
  2. LAMOTRIGINE [Concomitant]
     Active Substance: LAMOTRIGINE
     Dosage: 200 MILLIGRAM, QD (200 MG/DAY)
     Route: 065
  3. LAMOTRIGINE [Concomitant]
     Active Substance: LAMOTRIGINE
     Dosage: 250 MILLIGRAM, QD (250 MG/DAY)
     Route: 065
  4. FOLIC ACID [Concomitant]
     Active Substance: FOLIC ACID
     Dosage: UNK
     Route: 065
  5. LINACLOTIDE [Concomitant]
     Active Substance: LINACLOTIDE
     Indication: Gastrointestinal disorder
     Dosage: UNK
     Route: 065

REACTIONS (17)
  - Neutropenia [Recovered/Resolved]
  - Electrocardiogram QT prolonged [Unknown]
  - Drooling [Unknown]
  - Selective IgA immunodeficiency [Unknown]
  - Leukocytosis [Recovered/Resolved]
  - Neutrophil count increased [Recovered/Resolved]
  - Constipation [Recovered/Resolved]
  - Enuresis [Unknown]
  - Dizziness [Unknown]
  - Tachycardia [Unknown]
  - Monocyte count increased [Not Recovered/Not Resolved]
  - Red blood cell count decreased [Recovered/Resolved]
  - Haematocrit decreased [Recovered/Resolved]
  - Haemoglobin decreased [Recovered/Resolved]
  - Fatigue [Unknown]
  - Salivary hypersecretion [Unknown]
  - Off label use [Unknown]

NARRATIVE: CASE EVENT DATE: 20221001
